FAERS Safety Report 6977540-4 (Version None)
Quarter: 2010Q3

REPORT INFORMATION
  Report Type: 
  Country: None (occurrence: None)
  Receive Date: 20100911
  Receipt Date: 20100831
  Transmission Date: 20110219
  Serious: Yes (Other)
  Sender: FDA-Public Use
  Company Number: PHHY2010US09589

PATIENT
  Sex: Female
  Weight: 86.621 kg

DRUGS (8)
  1. RECLAST [Suspect]
     Indication: OSTEOPOROSIS
     Dosage: UNK
     Route: 042
     Dates: start: 20091204
  2. FOSAMAX [Concomitant]
     Indication: OSTEOPOROSIS
  3. ACTONEL [Concomitant]
     Indication: OSTEOPOROSIS
  4. BONIVA [Concomitant]
     Indication: OSTEOPOROSIS
  5. HYDROCHLOROTHIAZIDE [Concomitant]
     Indication: HYPERTENSION
     Dosage: UNK
     Route: 048
     Dates: start: 20091101, end: 20100401
  6. BENICAR [Concomitant]
     Indication: HYPERTENSION
     Dosage: UNK
     Route: 048
     Dates: start: 20091101
  7. LEXAPRO [Concomitant]
     Indication: DEPRESSION
     Dosage: QD
     Route: 048
     Dates: start: 20100401
  8. PREDNISONE [Concomitant]
     Indication: ARTHRALGIA
     Dosage: QD
     Route: 048
     Dates: start: 20100401, end: 20100701

REACTIONS (11)
  - ANXIETY [None]
  - ARTHRALGIA [None]
  - ATRIAL FIBRILLATION [None]
  - BLOOD SODIUM DECREASED [None]
  - CHEST PAIN [None]
  - DIARRHOEA [None]
  - DIZZINESS [None]
  - HYPERTENSION [None]
  - MUSCULOSKELETAL PAIN [None]
  - NAUSEA [None]
  - URINE CALCIUM DECREASED [None]
